FAERS Safety Report 6152523-5 (Version None)
Quarter: 2009Q2

REPORT INFORMATION
  Report Type: 
  Country: None (occurrence: None)
  Receive Date: 20090413
  Receipt Date: 20090402
  Transmission Date: 20091009
  Serious: Yes (Hospitalization)
  Sender: FDA-Public Use
  Company Number: HU-ELI_LILLY_AND_COMPANY-HU200904000379

PATIENT
  Sex: Female

DRUGS (5)
  1. GEMZAR [Suspect]
     Indication: BREAST CANCER METASTATIC
     Dosage: UNK UNK, OTHER
     Route: 042
     Dates: start: 20090317
  2. TAXOL [Concomitant]
     Indication: BREAST CANCER METASTATIC
     Dosage: UNK, UNKNOWN
     Route: 042
     Dates: start: 20090317
  3. MEDROL [Concomitant]
     Dosage: 16 MG, UNKNOWN
     Route: 065
  4. MEDROL [Concomitant]
     Dosage: 250 MG, DAILY (1/D)
     Route: 065
  5. IMURAN [Concomitant]
     Dosage: 200 MG, 2/D
     Route: 065

REACTIONS (5)
  - ASPHYXIA [None]
  - DYSPNOEA [None]
  - HAEMOPTYSIS [None]
  - MYOCARDIAL ISCHAEMIA [None]
  - PNEUMONITIS [None]
